FAERS Safety Report 4296737-8 (Version None)
Quarter: 2004Q1

REPORT INFORMATION
  Report Type: 
  Country: None (occurrence: None)
  Receive Date: 20040126
  Receipt Date: 20031022
  Transmission Date: 20041129
  Serious: No
  Sender: FDA-Public Use
  Company Number: USA030742174

PATIENT
  Age: 11 Year
  Sex: Male
  Weight: 36 kg

DRUGS (2)
  1. STRATTERA [Suspect]
     Indication: ATTENTION DEFICIT/HYPERACTIVITY DISORDER
     Dosage: 40 MG/IN THE MORNING
     Dates: start: 20030401
  2. CONCERTA [Concomitant]

REACTIONS (8)
  - ANOREXIA [None]
  - DECREASED APPETITE [None]
  - ENERGY INCREASED [None]
  - HYPERVIGILANCE [None]
  - INSOMNIA [None]
  - MALAISE [None]
  - MYDRIASIS [None]
  - WEIGHT DECREASED [None]
